FAERS Safety Report 9973103 (Version 2)
Quarter: 2014Q1

REPORT INFORMATION
  Report Type: Spontaneous
  Country: US (occurrence: US)
  Receive Date: 20140306
  Receipt Date: 20140327
  Transmission Date: 20141002
  Serious: Yes (Hospitalization)
  Sender: FDA-Public Use
  Company Number: US-PFIZER INC-2014064500

PATIENT
  Age: 51 Year
  Sex: Female
  Weight: 77.1 kg

DRUGS (4)
  1. PRISTIQ [Suspect]
     Indication: ANXIETY
     Dosage: 50 MG, DAILY
     Dates: start: 2010
  2. PRISTIQ [Suspect]
     Dosage: 50 MG, DAILY
  3. PRISTIQ [Suspect]
     Dosage: 100 MG, DAILY
  4. XANAX [Concomitant]
     Indication: ANXIETY
     Dosage: 1 MG, 2X/DAY

REACTIONS (2)
  - Diabetes mellitus [Unknown]
  - Colitis [Unknown]
